FAERS Safety Report 24401129 (Version 2)
Quarter: 2025Q4

REPORT INFORMATION
  Report Type: Report from Study
  Country: US (occurrence: US)
  Receive Date: 20241006
  Receipt Date: 20251012
  Transmission Date: 20260117
  Serious: Yes (Hospitalization, Other)
  Sender: ABBVIE
  Company Number: US-ABBVIE-5950143

PATIENT
  Age: 71 Year
  Sex: Male

DRUGS (2)
  1. DUOPA [Suspect]
     Active Substance: CARBIDOPA\LEVODOPA
     Indication: Parkinson^s disease
     Route: 050
     Dates: start: 20240802
  2. DUOPA [Suspect]
     Active Substance: CARBIDOPA\LEVODOPA
     Route: 050
     Dates: start: 20250802

REACTIONS (4)
  - Fall [Recovering/Resolving]
  - Skin laceration [Unknown]
  - Rash papular [Unknown]
  - Contusion [Unknown]

NARRATIVE: CASE EVENT DATE: 20240101
